FAERS Safety Report 17151093 (Version 1)
Quarter: 2019Q4

REPORT INFORMATION
  Report Type: Spontaneous
  Country: US (occurrence: US)
  Receive Date: 20191120
  Receipt Date: 20191120
  Transmission Date: 20200122
  Serious: Yes (Life-Threatening, Disabling)
  Sender: FDA-Public Use
  Company Number: None

PATIENT
  Age: 62 Year
  Sex: Female
  Weight: 65.77 kg

DRUGS (2)
  1. LEVOFLOXACIN 500MG (COMMONLY KNOWN AS LEVAQUIN) [Suspect]
     Active Substance: LEVOFLOXACIN
     Indication: ARTHROPOD BITE
     Dosage: ?          QUANTITY:1 TABLET;?
     Route: 048
     Dates: start: 20190730, end: 20190806
  2. LEVOFLOXACIN 500MG (COMMONLY KNOWN AS LEVAQUIN) [Suspect]
     Active Substance: LEVOFLOXACIN
     Indication: INFECTION
     Dosage: ?          QUANTITY:1 TABLET;?
     Route: 048
     Dates: start: 20190730, end: 20190806

REACTIONS (6)
  - Pain in extremity [None]
  - Parosmia [None]
  - Arthralgia [None]
  - Emotional distress [None]
  - Tendon pain [None]
  - Gait disturbance [None]

NARRATIVE: CASE EVENT DATE: 20190803
